FAERS Safety Report 22225765 (Version 5)
Quarter: 2023Q4

REPORT INFORMATION
  Report Type: Spontaneous
  Country: IT (occurrence: IT)
  Receive Date: 20230418
  Receipt Date: 20231017
  Transmission Date: 20240110
  Serious: Yes (Hospitalization)
  Sender: FDA-Public Use
  Company Number: IT-CELLTRION INC.-2023IT006489

PATIENT

DRUGS (31)
  1. TRASTUZUMAB [Suspect]
     Active Substance: TRASTUZUMAB
     Indication: HER2 positive breast cancer
     Dosage: 8 MG/KG,Q3WEEKS, MOST RECENT DOSE PRIOR TO THE EVENT: 21/NOV/2022
     Route: 042
     Dates: start: 20170418, end: 20170418
  2. TRASTUZUMAB [Suspect]
     Active Substance: TRASTUZUMAB
     Dosage: 350 MILLIGRAM, Q3WEEKS
     Route: 042
     Dates: start: 20211020, end: 20220316
  3. TRASTUZUMAB [Suspect]
     Active Substance: TRASTUZUMAB
     Dosage: 6 MG/KG, Q3WEEKS
     Route: 042
     Dates: start: 20170509, end: 20200803
  4. TRASTUZUMAB [Suspect]
     Active Substance: TRASTUZUMAB
     Dosage: 600 MG, Q3WEEKS
     Route: 058
     Dates: start: 20230109
  5. TRASTUZUMAB [Suspect]
     Active Substance: TRASTUZUMAB
     Dosage: 198 MILLIGRAM, Q3WEEKS
     Route: 042
     Dates: start: 20220316, end: 20221121
  6. TRASTUZUMAB [Suspect]
     Active Substance: TRASTUZUMAB
     Dosage: 490 MG/KG, Q3WEEKS
     Route: 042
     Dates: start: 20221121, end: 20230109
  7. ADO-TRASTUZUMAB EMTANSINE [Suspect]
     Active Substance: ADO-TRASTUZUMAB EMTANSINE
     Indication: HER2 positive breast cancer
     Dosage: 3.6 MG/KG, Q3WEEKS, MOST RECENT DOSE PRIOR TO THE EVENT: 27/SEP/2021
     Route: 042
     Dates: start: 20200803, end: 20210927
  8. EXEMESTANE [Suspect]
     Active Substance: EXEMESTANE
     Indication: HER2 positive breast cancer
     Dosage: 25 MILLIGRAM, QD, MOST RECENT DOSE PRIOR TO AE 03/AUG/2020
     Route: 048
     Dates: start: 20171019, end: 20200803
  9. TUCATINIB [Suspect]
     Active Substance: TUCATINIB
     Indication: HER2 positive breast cancer
     Dosage: 150 MILLIGRAM,FREQUENCY:4 TIMES
     Route: 048
     Dates: start: 20221121, end: 20221212
  10. CAPECITABINE [Suspect]
     Active Substance: CAPECITABINE
     Indication: HER2 positive breast cancer
     Dosage: 150 MILLIGRAM, FREQUENCY:4 TIMES
     Route: 048
     Dates: start: 20221121, end: 20221212
  11. CAPECITABINE [Suspect]
     Active Substance: CAPECITABINE
     Dosage: 500 MILLIGRAM, QD
     Route: 048
     Dates: start: 20221121, end: 20221212
  12. LEUPROLIDE ACETATE [Suspect]
     Active Substance: LEUPROLIDE ACETATE
     Indication: Product used for unknown indication
     Dosage: 3.75 MILLIGRAM, MONTHLY
     Route: 058
     Dates: start: 20171019
  13. DOCETAXEL [Suspect]
     Active Substance: DOCETAXEL
     Indication: HER2 positive breast cancer
     Dosage: 60 MG/M2, Q3WEEKS, MOST RECENT DOSE PRIOR TO THE EVENT: 9/MAY/2017
     Route: 042
     Dates: start: 20170418, end: 20170418
  14. DOCETAXEL [Suspect]
     Active Substance: DOCETAXEL
     Dosage: 75 MG/M2,Q3WEEKS
     Route: 042
     Dates: start: 20170509, end: 20170928
  15. PERTUZUMAB [Suspect]
     Active Substance: PERTUZUMAB
     Indication: HER2 positive breast cancer
     Dosage: 420 MILLIGRAM, Q3WEEKS
     Route: 042
     Dates: start: 20170509, end: 20200803
  16. PERTUZUMAB [Suspect]
     Active Substance: PERTUZUMAB
     Dosage: 840 MILLIGRAM, Q3WEEKS, MOST RECENT DOSE PRIOR TO THE EVENT: 9/MAY/2017
     Route: 042
     Dates: start: 20170418, end: 20170418
  17. FUROSEMIDE [Concomitant]
     Active Substance: FUROSEMIDE
     Indication: Product used for unknown indication
     Dosage: 12.5 MILLIGRAM, QD
     Route: 048
     Dates: start: 20170525, end: 20170716
  18. FUROSEMIDE [Concomitant]
     Active Substance: FUROSEMIDE
     Dosage: 25 MILLIGRAM, QD
     Route: 048
     Dates: start: 20170414, end: 20170418
  19. FUROSEMIDE [Concomitant]
     Active Substance: FUROSEMIDE
     Dosage: UNK, ONGOING = CHECKED
     Route: 065
     Dates: start: 20221012
  20. DEXAMETHASONE SODIUM PHOSPHATE [Concomitant]
     Active Substance: DEXAMETHASONE SODIUM PHOSPHATE
     Indication: HER2 positive breast cancer
     Dosage: 2 MILLIGRAM, ONGOING = CHECKED, 0.3 WEEKS
     Route: 048
     Dates: start: 20220921
  21. DEXAMETHASONE SODIUM PHOSPHATE [Concomitant]
     Active Substance: DEXAMETHASONE SODIUM PHOSPHATE
     Dosage: 4 MILLIGRAM, 0.3 WEEK, ONGOING = CHECKED
     Route: 048
     Dates: start: 20220727
  22. LEVETIRACETAM [Concomitant]
     Active Substance: LEVETIRACETAM
     Indication: Product used for unknown indication
     Dosage: 500 MG, 0.5 DAY, ONGOING = CHECKED
     Route: 048
     Dates: start: 20210614
  23. CYANOCOBALAMIN\PYRIDOXINE\THIAMINE [Concomitant]
     Active Substance: CYANOCOBALAMIN\PYRIDOXINE\THIAMINE
     Indication: Product used for unknown indication
     Dosage: UNK UNK, QD
     Route: 048
     Dates: start: 20220622
  24. LANSOPRAZOLE [Concomitant]
     Active Substance: LANSOPRAZOLE
     Indication: Product used for unknown indication
     Dosage: 15 MILLIGRAM, QD, ONGOING = CHECKED
     Route: 048
     Dates: start: 20201005
  25. TIOBEC [THIOCTIC ACID] [Concomitant]
     Indication: Product used for unknown indication
     Dosage: UNK UNK, QD, ONGOING = CHECKED
     Route: 048
     Dates: start: 20220622
  26. MOVICOL [Concomitant]
     Active Substance: POLYETHYLENE GLYCOL 3350\POTASSIUM CHLORIDE\SODIUM BICARBONATE\SODIUM CHLORIDE
     Indication: Product used for unknown indication
     Dosage: UNK, ONGOING = CHECKED
     Route: 065
     Dates: start: 20220413
  27. FOLIC ACID [Concomitant]
     Active Substance: FOLIC ACID
     Indication: Product used for unknown indication
     Dosage: UNK,ONGOING = CHECKED
     Route: 048
     Dates: start: 20220622
  28. ALDACTONE [Concomitant]
     Active Substance: SPIRONOLACTONE
     Indication: Product used for unknown indication
     Dosage: 25 MILLIGRAM, 0.3 WEEK, ONGOING = CHECKED
     Route: 048
     Dates: start: 20221012
  29. OXYCODONE HYDROCHLORIDE [Concomitant]
     Active Substance: OXYCODONE HYDROCHLORIDE
     Indication: Product used for unknown indication
     Dosage: 2.5 MILLIGRAM, ONGOING = CHECKED
     Route: 048
     Dates: start: 20221109
  30. ARIXTRA [Concomitant]
     Active Substance: FONDAPARINUX SODIUM
     Indication: Deep vein thrombosis
     Dosage: 7.5 MILLIGRAM, ONGOING = CHECKED
     Route: 048
     Dates: start: 20221111
  31. ENANTONE LP [Concomitant]
     Active Substance: LEUPROLIDE ACETATE
     Indication: Product used for unknown indication
     Dosage: 3.75 MILLIGRAM, MONTHLY, ONGOING = CHECKED
     Route: 058
     Dates: start: 20171018

REACTIONS (4)
  - Neurological decompensation [Not Recovered/Not Resolved]
  - Intentional product use issue [Unknown]
  - Underdose [Unknown]
  - Intentional product use issue [Unknown]

NARRATIVE: CASE EVENT DATE: 20221212
